FAERS Safety Report 5407070-2 (Version None)
Quarter: 2007Q3

REPORT INFORMATION
  Report Type: 
  Country: None (occurrence: None)
  Receive Date: 20070807
  Receipt Date: 20070803
  Transmission Date: 20080115
  Serious: Yes (Other)
  Sender: FDA-Public Use
  Company Number: PL-ASTRAZENECA-2007SE03900

PATIENT
  Age: 21670 Day
  Sex: Female

DRUGS (5)
  1. CLOPIDOGREL [Suspect]
     Indication: ACUTE CORONARY SYNDROME
     Route: 048
     Dates: start: 20070428, end: 20070628
  2. POLOCARD [Suspect]
     Dates: start: 20070417
  3. METOCARD [Suspect]
     Dates: start: 20070417
  4. POLPRAZOL [Suspect]
     Dates: start: 20070419
  5. CLARITIN [Concomitant]
     Dates: start: 20070425

REACTIONS (1)
  - HYPERSENSITIVITY [None]
